FAERS Safety Report 9925315 (Version 1)
Quarter: 2014Q1

REPORT INFORMATION
  Report Type: Spontaneous
  Country: FR (occurrence: FR)
  Receive Date: 20140226
  Receipt Date: 20140226
  Transmission Date: 20141002
  Serious: Yes (Other)
  Sender: FDA-Public Use
  Company Number: FR-SA-2014SA018522

PATIENT
  Age: 68 Year
  Sex: Male

DRUGS (11)
  1. LASILIX [Suspect]
     Indication: CARDIAC FAILURE
     Route: 048
     Dates: start: 20140126
  2. FOSINOPRIL [Suspect]
     Indication: CARDIAC FAILURE
     Route: 048
     Dates: start: 20140127
  3. HYDROCORTISONE [Concomitant]
  4. KARDEGIC [Concomitant]
  5. DIFFU K [Concomitant]
  6. PRAVASTATINE [Concomitant]
  7. COTAREG [Concomitant]
  8. LOXEN [Concomitant]
  9. STAGID [Concomitant]
  10. SERETIDE [Concomitant]
  11. SPIRIVA [Concomitant]

REACTIONS (1)
  - Angioedema [Recovered/Resolved]
